FAERS Safety Report 7418737-9 (Version None)
Quarter: 2011Q2

REPORT INFORMATION
  Report Type: 
  Country: None (occurrence: None)
  Receive Date: 20110415
  Receipt Date: 20110412
  Transmission Date: 20111010
  Serious: Yes (Hospitalization)
  Sender: FDA-Public Use
  Company Number: US-ROXANE LABORATORIES, INC.-2011-RO-00507RO

PATIENT
  Sex: Male

DRUGS (3)
  1. ELOTUZUMAB [Suspect]
     Indication: MULTIPLE MYELOMA
     Route: 042
  2. LENALIDOMIDE [Suspect]
     Indication: MULTIPLE MYELOMA
     Dosage: 25 MG
     Route: 048
  3. DEXAMETHASONE [Suspect]
     Indication: MULTIPLE MYELOMA
     Dosage: 20 MG
     Route: 048
     Dates: start: 20110306

REACTIONS (2)
  - CELLULITIS [None]
  - PHLEBITIS SUPERFICIAL [None]
